FAERS Safety Report 5715746-2 (Version None)
Quarter: 2008Q2

REPORT INFORMATION
  Report Type: 
  Country: None (occurrence: None)
  Receive Date: 20080423
  Receipt Date: 20080423
  Transmission Date: 20081010
  Serious: Yes (Hospitalization)
  Sender: FDA-Public Use
  Company Number: None

PATIENT
  Sex: Female
  Weight: 73.09 kg

DRUGS (1)
  1. TOPOTECAN [Suspect]
     Dosage: 7.2 MG

REACTIONS (3)
  - CHEST PAIN [None]
  - PLEURAL EFFUSION [None]
  - PNEUMOTHORAX [None]
